FAERS Safety Report 19153319 (Version 5)
Quarter: 2021Q3

REPORT INFORMATION
  Report Type: Spontaneous
  Country: US (occurrence: US)
  Receive Date: 20210419
  Receipt Date: 20210812
  Transmission Date: 20211014
  Serious: No
  Sender: FDA-Public Use
  Company Number: US-PFIZER INC-2020180804

PATIENT
  Age: 57 Year
  Sex: Female

DRUGS (3)
  1. PREMARIN [Suspect]
     Active Substance: ESTROGENS, CONJUGATED
     Indication: HOT FLUSH
     Dosage: 1 G, 2X/WEEK (0.5 APPLICATOR FULL)
     Route: 067
  2. PREMARIN [Suspect]
     Active Substance: ESTROGENS, CONJUGATED
     Dosage: 0.5 APPLICATOR, 2X/WEEK
     Route: 067
  3. PREMARIN [Suspect]
     Active Substance: ESTROGENS, CONJUGATED
     Indication: VULVOVAGINAL DRYNESS
     Dosage: USE 1.0 NIGHTLY
     Route: 067

REACTIONS (8)
  - Symptom recurrence [Unknown]
  - Product dose omission issue [Unknown]
  - Off label use [Unknown]
  - Prescription drug used without a prescription [Unknown]
  - Vaginal haemorrhage [Unknown]
  - Hyperhidrosis [Unknown]
  - Product dispensing issue [Unknown]
  - Feeling abnormal [Unknown]

NARRATIVE: CASE EVENT DATE: 202009
